FAERS Safety Report 20297868 (Version 5)
Quarter: 2022Q3

REPORT INFORMATION
  Report Type: Report from Study
  Country: EG (occurrence: EG)
  Receive Date: 20220105
  Receipt Date: 20220909
  Transmission Date: 20221027
  Serious: Yes (Other)
  Sender: FDA-Public Use
  Company Number: EG-NOVARTISPH-NVSC2021EG280106

PATIENT
  Age: 8 Year
  Sex: Female

DRUGS (7)
  1. OMNITROPE [Suspect]
     Active Substance: SOMATROPIN
     Indication: Off label use
     Dosage: 0.8 MG, QD
     Route: 058
     Dates: start: 20211126, end: 202201
  2. OMNITROPE [Suspect]
     Active Substance: SOMATROPIN
     Indication: Precocious puberty
     Dosage: 0.8 MG, QD
     Route: 058
     Dates: start: 20220714
  3. OMNITROPE [Suspect]
     Active Substance: SOMATROPIN
     Indication: Growth disorder
     Dosage: 0.8 MG, QD
     Route: 058
  4. ZOLADEX [Concomitant]
     Active Substance: GOSERELIN ACETATE
     Indication: Precocious puberty
     Dosage: 1 DOSAGE FORM, Q3MO
     Route: 065
     Dates: start: 20210816
  5. ZOLADEX [Concomitant]
     Active Substance: GOSERELIN ACETATE
     Dosage: 1 DOSAGE FORM, Q3MO
     Route: 065
     Dates: start: 20211116
  6. VIDROP [Concomitant]
     Indication: Supplementation therapy
     Dosage: 1 DOSAGE FORM, QD (WHOLE DROPPER/DAY)
     Route: 048
  7. HI-CAL [Concomitant]
     Indication: Supplementation therapy
     Dosage: 5 CM/DAY
     Route: 048

REACTIONS (24)
  - Back pain [Recovering/Resolving]
  - Nervousness [Not Recovered/Not Resolved]
  - Irritability [Not Recovered/Not Resolved]
  - Pain in extremity [Not Recovered/Not Resolved]
  - Seizure [Not Recovered/Not Resolved]
  - Abdominal pain [Not Recovered/Not Resolved]
  - Renal pain [Not Recovered/Not Resolved]
  - Fatigue [Not Recovered/Not Resolved]
  - Skin discolouration [Not Recovered/Not Resolved]
  - Crying [Not Recovered/Not Resolved]
  - Nasopharyngitis [Not Recovered/Not Resolved]
  - Bone pain [Recovered/Resolved]
  - Injection site haemorrhage [Recovered/Resolved]
  - Injection site haemorrhage [Recovered/Resolved]
  - Product storage error [Recovered/Resolved]
  - Device issue [Recovered/Resolved]
  - Incorrect dose administered [Recovered/Resolved]
  - Wrong technique in product usage process [Recovered/Resolved]
  - Drug dose omission by device [Recovered/Resolved]
  - Product use in unapproved indication [Recovered/Resolved]
  - Drug dose omission by device [Not Recovered/Not Resolved]
  - Product preparation error [Recovered/Resolved]
  - Medication error [Recovered/Resolved]
  - Device malfunction [Unknown]

NARRATIVE: CASE EVENT DATE: 20211126
